FAERS Safety Report 15347784 (Version 1)
Quarter: 2018Q3

REPORT INFORMATION
  Report Type: Spontaneous
  Country: US (occurrence: US)
  Receive Date: 20180829
  Receipt Date: 20180829
  Transmission Date: 20181010
  Serious: Yes (Hospitalization)
  Sender: FDA-Public Use
  Company Number: None

PATIENT
  Age: 63 Year
  Sex: Female

DRUGS (3)
  1. ENBREL [Suspect]
     Active Substance: ETANERCEPT
     Indication: GLOMERULAR FILTRATION RATE ABNORMAL
     Dosage: ?          OTHER FREQUENCY:QW;?
     Route: 058
     Dates: start: 20171227
  2. ENBREL [Suspect]
     Active Substance: ETANERCEPT
     Indication: PROTEINURIA
     Dosage: ?          OTHER FREQUENCY:QW;?
     Route: 058
     Dates: start: 20171227
  3. VITAMIN B12 [Concomitant]
     Active Substance: CYANOCOBALAMIN

REACTIONS (1)
  - Chest pain [None]

NARRATIVE: CASE EVENT DATE: 20180827
